FAERS Safety Report 6863774-6 (Version None)
Quarter: 2010Q3

REPORT INFORMATION
  Report Type: 
  Country: None (occurrence: None)
  Receive Date: 20100721
  Receipt Date: 20080404
  Transmission Date: 20110219
  Serious: No
  Sender: FDA-Public Use
  Company Number: US-PFIZER INC-2008022237

PATIENT
  Sex: Female
  Weight: 82.6 kg

DRUGS (8)
  1. CHANTIX [Suspect]
     Indication: SMOKING CESSATION THERAPY
     Route: 048
     Dates: start: 20080201
  2. ATENOLOL [Concomitant]
  3. TRAMADOL [Concomitant]
  4. TOPAMAX [Concomitant]
  5. OMEPRAZOLE [Concomitant]
  6. ZOCOR [Concomitant]
  7. NEURONTIN [Concomitant]
  8. GEMFIBROZIL [Concomitant]

REACTIONS (4)
  - DYSPEPSIA [None]
  - FLATULENCE [None]
  - INAPPROPRIATE SCHEDULE OF DRUG ADMINISTRATION [None]
  - NAUSEA [None]
